FAERS Safety Report 14161802 (Version 1)
Quarter: 2017Q4

REPORT INFORMATION
  Report Type: Spontaneous
  Country: US (occurrence: None)
  Receive Date: 20171104
  Receipt Date: 20171104
  Transmission Date: 20180321
  Serious: Yes (Hospitalization)
  Sender: FDA-Public Use
  Company Number: None

PATIENT
  Age: 64 Year
  Sex: Male
  Weight: 137 kg

DRUGS (6)
  1. LEUCOVORIN. [Concomitant]
     Active Substance: LEUCOVORIN
  2. FLUOROURACIL. [Concomitant]
     Active Substance: FLUOROURACIL
  3. HERCEPTIN [Concomitant]
     Active Substance: TRASTUZUMAB
  4. MEMANTINE HYDROCHLORIDE. [Suspect]
     Active Substance: MEMANTINE HYDROCHLORIDE
     Dates: end: 20171030
  5. IRINTECAN [Concomitant]
  6. NEULASTA [Concomitant]
     Active Substance: PEGFILGRASTIM

REACTIONS (5)
  - Hypokalaemia [None]
  - Blood creatinine increased [None]
  - Diarrhoea [None]
  - Dehydration [None]
  - Asthenia [None]

NARRATIVE: CASE EVENT DATE: 20171031
